FAERS Safety Report 9171401 (Version 5)
Quarter: 2013Q4

REPORT INFORMATION
  Report Type: Spontaneous
  Country: JP (occurrence: JP)
  Receive Date: 20130319
  Receipt Date: 20131125
  Transmission Date: 20140711
  Serious: Yes (Death, Hospitalization)
  Sender: FDA-Public Use
  Company Number: JP-ELI_LILLY_AND_COMPANY-JP201303004555

PATIENT
  Age: 72 Year
  Sex: Female
  Weight: 57.1 kg

DRUGS (5)
  1. GEMZAR [Suspect]
     Indication: BILE DUCT ADENOCARCINOMA
     Dosage: 1600 MG, OTHER
     Route: 042
     Dates: start: 20081218, end: 20090115
  2. TS 1 [Concomitant]
     Indication: BILE DUCT ADENOCARCINOMA
     Dosage: 100 MG, OTHER
     Route: 048
     Dates: start: 20081218, end: 20090121
  3. DECADRON                                /CAN/ [Concomitant]
     Indication: PROPHYLAXIS OF NAUSEA AND VOMITING
     Dosage: 8 MG, UNK
     Route: 042
     Dates: start: 20081218, end: 20090115
  4. PROTECADIN [Concomitant]
     Indication: GASTRITIS PROPHYLAXIS
     Dosage: 10 MG, UNK
     Route: 048
     Dates: start: 20081218, end: 20090128
  5. SELBEX [Concomitant]
     Indication: GASTRITIS PROPHYLAXIS
     Dosage: 1.5 MG, UNK
     Route: 048
     Dates: start: 20081218, end: 20090128

REACTIONS (1)
  - Interstitial lung disease [Fatal]
